FAERS Safety Report 6800187-7 (Version None)
Quarter: 2010Q2

REPORT INFORMATION
  Report Type: 
  Country: None (occurrence: None)
  Receive Date: 20100616
  Receipt Date: 20100609
  Transmission Date: 20101027
  Serious: Yes (Other)
  Sender: FDA-Public Use
  Company Number: 2010SP028687

PATIENT
  Age: 53 Year
  Sex: Female
  Weight: 70 kg

DRUGS (1)
  1. DESLORATADINE [Suspect]
     Indication: NASAL CONGESTION
     Dosage: 5 MG; ; PO
     Route: 048

REACTIONS (3)
  - ORAL DISCOMFORT [None]
  - STOMATITIS [None]
  - THROAT IRRITATION [None]
